FAERS Safety Report 8386468-7 (Version None)
Quarter: 2012Q2

REPORT INFORMATION
  Report Type: 
  Country: None (occurrence: None)
  Receive Date: 20120525
  Receipt Date: 20120523
  Transmission Date: 20120825
  Serious: Yes (Death)
  Sender: FDA-Public Use
  Company Number: US-JNJFOC-20120518324

PATIENT
  Age: 27 Year
  Sex: Female

DRUGS (7)
  1. WELLBUTRIN [Concomitant]
     Indication: DEPRESSION
     Route: 065
     Dates: end: 20120420
  2. GABAPENTIN [Concomitant]
     Indication: PAIN
     Route: 065
     Dates: end: 20120420
  3. MULTI-VITAMINS [Concomitant]
     Indication: MEDICAL DIET
     Route: 065
     Dates: end: 20120420
  4. NUCYNTA ER [Suspect]
     Indication: PAIN
     Dosage: 2 DOSES
     Route: 048
     Dates: start: 20120418, end: 20120418
  5. VALIUM [Concomitant]
     Indication: ANXIETY
     Route: 065
     Dates: end: 20120420
  6. VITAMIN D [Concomitant]
     Indication: MEDICAL DIET
     Route: 065
     Dates: end: 20120420
  7. DICYCLOMINE [Concomitant]
     Indication: MUSCLE SPASMS
     Route: 065
     Dates: end: 20120420

REACTIONS (2)
  - DEATH [None]
  - URINARY RETENTION [None]
